FAERS Safety Report 16623361 (Version 1)
Quarter: 2019Q3

REPORT INFORMATION
  Report Type: Spontaneous
  Country: ES (occurrence: ES)
  Receive Date: 20190723
  Receipt Date: 20190723
  Transmission Date: 20191004
  Serious: Yes (Life-Threatening, Hospitalization)
  Sender: FDA-Public Use
  Company Number: ES-MYLANLABS-2019M1068814

PATIENT
  Age: 71 Year
  Sex: Male

DRUGS (6)
  1. BIPERIDENO                         /00079501/ [Concomitant]
     Indication: SCHIZOPHRENIA
     Dosage: 4 MILLIGRAM, QD
     Route: 048
     Dates: start: 20181203, end: 20181227
  2. QUETIAPINE. [Suspect]
     Active Substance: QUETIAPINE
     Indication: SCHIZOPHRENIA
     Dosage: 100 MILLIGRAM, Q8H
     Route: 048
     Dates: start: 201708, end: 20181221
  3. SERTRALINE [Interacting]
     Active Substance: SERTRALINE HYDROCHLORIDE
     Indication: SCHIZOPHRENIA
     Dosage: 100 MILLIGRAM, QD
     Route: 048
     Dates: start: 201701, end: 20181221
  4. GABAPENTINA [Concomitant]
     Active Substance: GABAPENTIN
     Indication: SCHIZOPHRENIA
     Dosage: 100 MILLIGRAM, Q8H
     Route: 048
     Dates: start: 201701, end: 20181227
  5. VALPROATO [Concomitant]
     Active Substance: VALPROATE SODIUM
     Indication: SCHIZOPHRENIA
     Dosage: 500 MILLIGRAM, BID
     Route: 048
     Dates: start: 201701, end: 20181221
  6. ABILIFY [Interacting]
     Active Substance: ARIPIPRAZOLE
     Indication: SCHIZOPHRENIA
     Dosage: 300 MILLIGRAM, QD
     Route: 030
     Dates: start: 20181217, end: 20181217

REACTIONS (2)
  - Drug interaction [Unknown]
  - Neuroleptic malignant syndrome [Recovered/Resolved]

NARRATIVE: CASE EVENT DATE: 20181219
